FAERS Safety Report 9837293 (Version 1)
Quarter: 2013Q4

REPORT INFORMATION
  Report Type: Spontaneous
  Country: US (occurrence: None)
  Receive Date: 20131127
  Receipt Date: 20131127
  Transmission Date: 20140711
  Serious: No
  Sender: FDA-Public Use
  Company Number: 224361

PATIENT
  Sex: Male

DRUGS (1)
  1. PICATO [Suspect]
     Indication: ACTINIC KERATOSIS
     Dosage: (ONCE DAIL FOR 3 DAYS), TOPICAL?STARTED A YEAR AGO AND STOPPED 3 DAYS LATER
     Route: 061

REACTIONS (2)
  - Application site erythema [None]
  - Drug administered at inappropriate site [None]
